FAERS Safety Report 10449434 (Version 1)
Quarter: 2014Q3

REPORT INFORMATION
  Report Type: Spontaneous
  Country: US (occurrence: None)
  Receive Date: 20140911
  Receipt Date: 20140911
  Transmission Date: 20150326
  Serious: No
  Sender: FDA-Public Use
  Company Number: None

PATIENT
  Age: 80 Year
  Sex: Female
  Weight: 58.97 kg

DRUGS (7)
  1. CALCIUM + D+ R [Concomitant]
  2. METOPROLOL [Concomitant]
     Active Substance: METOPROLOL
  3. PRILOSEC [Concomitant]
     Active Substance: OMEPRAZOLE MAGNESIUM
  4. ASPIRIN. [Concomitant]
     Active Substance: ASPIRIN
  5. EXEMESTANE 25MG GRE [Suspect]
     Active Substance: EXEMESTANE
     Indication: OESTROGEN RECEPTOR ASSAY POSITIVE
     Route: 048
     Dates: start: 20140417
  6. XANAX [Concomitant]
     Active Substance: ALPRAZOLAM
  7. MULTI-VITAMIN [Concomitant]
     Active Substance: .ALPHA.-TOCOPHEROL ACETATE, DL-\ASCORBIC ACID\CYANOCOBALAMIN\FLUORIDE ION\FOLIC ACID\NIACIN\PYRIDOXINE\RIBOFLAVIN\THIAMINE\VITAMIN A\VITAMIN D

REACTIONS (2)
  - Hair growth abnormal [None]
  - Alopecia [None]

NARRATIVE: CASE EVENT DATE: 20140618
